FAERS Safety Report 25849976 (Version 1)
Quarter: 2025Q3

REPORT INFORMATION
  Report Type: Spontaneous
  Country: GB (occurrence: GB)
  Receive Date: 20250926
  Receipt Date: 20250926
  Transmission Date: 20251021
  Serious: Yes (Other)
  Sender: CELLTRION
  Company Number: GB-CELLTRION INC.-2025GB034060

PATIENT

DRUGS (2)
  1. YUFLYMA [Suspect]
     Active Substance: ADALIMUMAB-AATY
     Indication: Hidradenitis
     Dosage: 40 MG ONCE A WEEK
     Route: 058
     Dates: start: 202507
  2. YUFLYMA [Suspect]
     Active Substance: ADALIMUMAB-AATY

REACTIONS (5)
  - Immobile [Unknown]
  - Limb injury [Unknown]
  - Product knowledge deficit [Unknown]
  - Product dose omission issue [Unknown]
  - Product distribution issue [Unknown]
